FAERS Safety Report 24250865 (Version 1)
Quarter: 2024Q3

REPORT INFORMATION
  Report Type: Spontaneous
  Country: CA (occurrence: CA)
  Receive Date: 20240826
  Receipt Date: 20240826
  Transmission Date: 20241016
  Serious: Yes (Death, Other)
  Sender: DAIICHI
  Company Number: CA-AstraZeneca-2024A190441

PATIENT
  Age: 51 Year
  Sex: Female

DRUGS (1)
  1. TRASTUZUMAB DERUXTECAN [Suspect]
     Active Substance: TRASTUZUMAB DERUXTECAN
     Indication: HER2 negative breast cancer
     Dosage: 453 MG 1 EVERY 56 HOURS
     Route: 042

REACTIONS (1)
  - Death [Fatal]
